FAERS Safety Report 6121879-1 (Version None)
Quarter: 2009Q1

REPORT INFORMATION
  Report Type: 
  Country: None (occurrence: None)
  Receive Date: 20090313
  Receipt Date: 20090302
  Transmission Date: 20090719
  Serious: Yes (Other)
  Sender: FDA-Public Use
  Company Number: 2009AP000733

PATIENT
  Age: 8 Year
  Sex: Male

DRUGS (5)
  1. GABAPENTIN [Suspect]
     Dosage: 20 MG/KG; TID PO
     Route: 048
  2. CLONAZEPAM [Concomitant]
  3. VALPROIC ACID [Concomitant]
  4. CHLORAL HYDRATE (CHLORAL HYDRATE) [Concomitant]
  5. CITALOPRAM HYDROBROMIDE [Concomitant]

REACTIONS (4)
  - INSOMNIA [None]
  - IRRITABILITY [None]
  - RASH PRURITIC [None]
  - URTICARIA [None]
